FAERS Safety Report 5721562-8 (Version None)
Quarter: 2008Q2

REPORT INFORMATION
  Report Type: 
  Country: None (occurrence: None)
  Receive Date: 20080424
  Receipt Date: 20080411
  Transmission Date: 20081010
  Serious: Yes (Hospitalization, Other)
  Sender: FDA-Public Use
  Company Number: MEDI-0006741

PATIENT
  Age: 15 Month
  Sex: Male
  Weight: 6.22 kg

DRUGS (10)
  1. SYNAGIS [Suspect]
     Indication: ANTIVIRAL PROPHYLAXIS
     Dosage: 0.93, 0.87, 0.89, 0.98, 0.93, 0.96
     Dates: start: 20071009, end: 20071205
  2. SYNAGIS [Suspect]
     Indication: ANTIVIRAL PROPHYLAXIS
     Dosage: 0.93, 0.87, 0.89, 0.98, 0.93, 0.96
     Dates: start: 20071019
  3. SYNAGIS [Suspect]
     Indication: ANTIVIRAL PROPHYLAXIS
     Dosage: 0.93, 0.87, 0.89, 0.98, 0.93, 0.96
     Dates: start: 20071107
  4. SYNAGIS [Suspect]
     Indication: ANTIVIRAL PROPHYLAXIS
     Dosage: 0.93, 0.87, 0.89, 0.98, 0.93, 0.96
     Dates: start: 20080109
  5. SYNAGIS [Suspect]
     Indication: ANTIVIRAL PROPHYLAXIS
     Dosage: 0.93, 0.87, 0.89, 0.98, 0.93, 0.96
     Dates: start: 20080206
  6. SYNAGIS [Suspect]
     Indication: ANTIVIRAL PROPHYLAXIS
     Dosage: 0.93, 0.87, 0.89, 0.98, 0.93, 0.96
     Dates: start: 20080305
  7. SYNAGIS [Suspect]
  8. SYNAGIS [Suspect]
  9. SYNAGIS [Suspect]
  10. SYNAGIS [Suspect]

REACTIONS (11)
  - CYANOSIS [None]
  - DYSPNOEA [None]
  - GENERAL PHYSICAL HEALTH DETERIORATION [None]
  - HYPERTENSION [None]
  - HYPOVENTILATION [None]
  - PALLOR [None]
  - PNEUMONIA [None]
  - RESPIRATION ABNORMAL [None]
  - RESPIRATORY SYNCYTIAL VIRUS BRONCHIOLITIS [None]
  - RHINITIS [None]
  - TACHYPNOEA [None]
